FAERS Safety Report 5521948-0 (Version None)
Quarter: 2007Q4

REPORT INFORMATION
  Report Type: 
  Country: None (occurrence: None)
  Receive Date: 20071120
  Receipt Date: 20070417
  Transmission Date: 20080405
  Serious: No
  Sender: FDA-Public Use
  Company Number: US-BRISTOL-MYERS SQUIBB COMPANY-13749916

PATIENT
  Sex: Female
  Weight: 63 kg

DRUGS (3)
  1. AVALIDE [Suspect]
     Indication: HYPERTENSION
     Dosage: 150 MG/12.5 MG 1/2 TABLET ONCE DAILY.
     Route: 048
  2. ATENOLOL [Concomitant]
  3. EXCEDRIN (MIGRAINE) [Concomitant]

REACTIONS (1)
  - BLOOD GLUCOSE INCREASED [None]
